FAERS Safety Report 14304980 (Version 1)
Quarter: 2017Q4

REPORT INFORMATION
  Report Type: Spontaneous
  Country: JP (occurrence: JP)
  Receive Date: 20171219
  Receipt Date: 20171219
  Transmission Date: 20180321
  Serious: Yes (Other)
  Sender: FDA-Public Use
  Company Number: JP-OTSUKA-JP-2014-19554

PATIENT
  Sex: Male

DRUGS (4)
  1. ABILIFY [Suspect]
     Active Substance: ARIPIPRAZOLE
     Indication: HYPERACUSIS
     Dosage: 3 MG, QD
     Route: 048
     Dates: start: 20141003, end: 20141031
  2. EVAMYL [Concomitant]
     Active Substance: LORMETAZEPAM
     Indication: PRODUCT USED FOR UNKNOWN INDICATION
     Dosage: 2 MG, QD
     Route: 048
  3. STRATTERA [Concomitant]
     Active Substance: ATOMOXETINE HYDROCHLORIDE
     Indication: PRODUCT USED FOR UNKNOWN INDICATION
     Dosage: 80 MG, QD
     Route: 048
  4. ABILIFY [Suspect]
     Active Substance: ARIPIPRAZOLE
     Indication: OFF LABEL USE
     Dosage: 6 MG, QD
     Route: 048
     Dates: start: 20141101, end: 20141128

REACTIONS (3)
  - Off label use [Unknown]
  - Visual impairment [Not Recovered/Not Resolved]
  - Accommodation disorder [Not Recovered/Not Resolved]

NARRATIVE: CASE EVENT DATE: 20141101
